FAERS Safety Report 5673642-3 (Version None)
Quarter: 2008Q1

REPORT INFORMATION
  Report Type: 
  Country: None (occurrence: None)
  Receive Date: 20080319
  Receipt Date: 20080307
  Transmission Date: 20080703
  Serious: Yes (Other)
  Sender: FDA-Public Use
  Company Number: FR-PFIZER INC-2008022531

PATIENT
  Age: 46 Year
  Sex: Male

DRUGS (3)
  1. CADUET [Suspect]
     Indication: HYPERTENSION
     Dosage: TEXT:5MG/10MG
  2. INSULIN LISPRO [Concomitant]
  3. INSULIN GLARGINE [Concomitant]

REACTIONS (4)
  - BLOOD PRESSURE INCREASED [None]
  - HYPOGLYCAEMIA [None]
  - MUSCLE CONTRACTIONS INVOLUNTARY [None]
  - NAUSEA [None]
